FAERS Safety Report 10256000 (Version 1)
Quarter: 2014Q2

REPORT INFORMATION
  Report Type: Spontaneous
  Country: RU (occurrence: RU)
  Receive Date: 20140624
  Receipt Date: 20140624
  Transmission Date: 20141212
  Serious: Yes (Hospitalization)
  Sender: FDA-Public Use
  Company Number: RU-VIIV HEALTHCARE LIMITED-B1006630A

PATIENT
  Sex: Female

DRUGS (3)
  1. LAMIVUDINE-HIV [Suspect]
     Indication: HIV INFECTION
     Route: 065
  2. KALETRA [Suspect]
     Indication: HIV INFECTION
     Route: 065
  3. ZIDO-H [Suspect]
     Indication: HIV INFECTION
     Route: 065

REACTIONS (6)
  - Vomiting [Not Recovered/Not Resolved]
  - Decreased appetite [Unknown]
  - Sleep disorder [Unknown]
  - Cough [Unknown]
  - Lethargy [Unknown]
  - Aphagia [None]
